FAERS Safety Report 12530325 (Version 3)
Quarter: 2016Q3

REPORT INFORMATION
  Report Type: Spontaneous
  Country: US (occurrence: US)
  Receive Date: 20160706
  Receipt Date: 20160803
  Transmission Date: 20161109
  Serious: Yes (Death, Hospitalization)
  Sender: FDA-Public Use
  Company Number: US-ROCHE-1789366

PATIENT
  Sex: Female
  Weight: 62.7 kg

DRUGS (1)
  1. ACTEMRA [Suspect]
     Active Substance: TOCILIZUMAB
     Indication: STILL^S DISEASE ADULT ONSET
     Dosage: OCT-MAY THEN UP TO 6MG/KG FOR 1 DOSE IN JUNE
     Route: 042
     Dates: start: 20151001, end: 20160620

REACTIONS (1)
  - Hepatic failure [Fatal]
